FAERS Safety Report 11999332 (Version 1)
Quarter: 2016Q1

REPORT INFORMATION
  Report Type: Spontaneous
  Country: US (occurrence: None)
  Receive Date: 20160203
  Receipt Date: 20160203
  Transmission Date: 20160526
  Serious: No
  Sender: FDA-Public Use
  Company Number: None

PATIENT
  Age: 56 Year
  Sex: Male
  Weight: 97.52 kg

DRUGS (3)
  1. KEFLEX [Suspect]
     Active Substance: CEPHALEXIN
     Indication: TOOTH INFECTION
     Dosage: 500 MG, FOUR TIMES DAILY, TAKEN BY MOUTH
     Route: 048
     Dates: start: 20151230, end: 20160107
  2. BABY ASPIRIN [Concomitant]
     Active Substance: ASPIRIN
  3. PRILOSEC [Concomitant]
     Active Substance: OMEPRAZOLE MAGNESIUM

REACTIONS (2)
  - Pruritus [None]
  - Urticaria [None]

NARRATIVE: CASE EVENT DATE: 20151230
